FAERS Safety Report 21032219 (Version 2)
Quarter: 2022Q3

REPORT INFORMATION
  Report Type: Spontaneous
  Country: BR (occurrence: BR)
  Receive Date: 20220701
  Receipt Date: 20220706
  Transmission Date: 20221026
  Serious: Yes (Death)
  Sender: FDA-Public Use
  Company Number: BR-BRISTOL-MYERS SQUIBB COMPANY-2022-026136

PATIENT
  Age: 83 Year
  Sex: Male

DRUGS (2)
  1. REVLIMID [Suspect]
     Active Substance: LENALIDOMIDE
     Indication: Plasma cell myeloma
     Dosage: FREQ : TAKE FOR 14 DAYS, PAUSE FOR 7 DAYS (CYCLE OF 21 DAYS
     Route: 065
  2. REVLIMID [Suspect]
     Active Substance: LENALIDOMIDE
     Dosage: TAKE FOR 21 DAYS, PAUSE FOR 7 DAYS (28-DAY CYCLE)
     Route: 065

REACTIONS (2)
  - COVID-19 [Fatal]
  - Product prescribing error [Unknown]
